FAERS Safety Report 6145004-6 (Version None)
Quarter: 2009Q2

REPORT INFORMATION
  Report Type: 
  Country: None (occurrence: None)
  Receive Date: 20090406
  Receipt Date: 20090324
  Transmission Date: 20091009
  Serious: Yes (Death)
  Sender: FDA-Public Use
  Company Number: US-ELI_LILLY_AND_COMPANY-US200903006361

PATIENT
  Age: 85 Year
  Sex: Male

DRUGS (2)
  1. ZYPREXA [Suspect]
     Indication: FEELING OF RELAXATION
  2. DEPAKOTE [Concomitant]
     Indication: DEMENTIA

REACTIONS (5)
  - DEHYDRATION [None]
  - OVERDOSE [None]
  - PAIN [None]
  - PNEUMONIA [None]
  - UNRESPONSIVE TO STIMULI [None]
